FAERS Safety Report 9327856 (Version 2)
Quarter: 2013Q2

REPORT INFORMATION
  Report Type: Spontaneous
  Country: CA (occurrence: CA)
  Receive Date: 20130604
  Receipt Date: 20130611
  Transmission Date: 20140414
  Serious: Yes (Other)
  Sender: FDA-Public Use
  Company Number: CA-JNJFOC-20130521384

PATIENT
  Age: 55 Year
  Sex: Female
  Weight: 50 kg

DRUGS (2)
  1. REACTINE EXTRA STRENGTH [Suspect]
     Route: 048
  2. REACTINE EXTRA STRENGTH [Suspect]
     Indication: MULTIPLE ALLERGIES
     Route: 048
     Dates: start: 20130525, end: 20130525

REACTIONS (1)
  - Depression [Recovered/Resolved]
